FAERS Safety Report 24639549 (Version 1)
Quarter: 2024Q4

REPORT INFORMATION
  Report Type: Spontaneous
  Country: JP (occurrence: JP)
  Receive Date: 20241119
  Receipt Date: 20241119
  Transmission Date: 20250115
  Serious: No
  Sender: ASTELLAS
  Company Number: JP-ASTELLAS-2024JP005025

PATIENT
  Sex: Female

DRUGS (4)
  1. VESICARE [Suspect]
     Active Substance: SOLIFENACIN SUCCINATE
     Indication: Hypertonic bladder
     Dosage: 5 MG, ONCE DAILY, AT NIGHT
     Route: 048
  2. LINZESS [Suspect]
     Active Substance: LINACLOTIDE
     Indication: Product used for unknown indication
     Route: 048
  3. SOLIFENACIN SUCCINATE [Concomitant]
     Active Substance: SOLIFENACIN SUCCINATE
     Indication: Hypertonic bladder
     Route: 065
  4. LANSOPRAZOLE [Concomitant]
     Active Substance: LANSOPRAZOLE
     Indication: Gastrooesophageal reflux disease
     Dosage: EVERY NIGHT
     Route: 048

REACTIONS (8)
  - Pollakiuria [Unknown]
  - Dry mouth [Unknown]
  - Nocturia [Unknown]
  - Gastrooesophageal reflux disease [Unknown]
  - Saliva altered [Unknown]
  - Dysphonia [Unknown]
  - Chest discomfort [Unknown]
  - Product use issue [Unknown]
